FAERS Safety Report 19944842 (Version 1)
Quarter: 2021Q4

REPORT INFORMATION
  Report Type: Spontaneous
  Country: FR (occurrence: FR)
  Receive Date: 20211012
  Receipt Date: 20211012
  Transmission Date: 20220303
  Serious: Yes (Hospitalization)
  Sender: FDA-Public Use
  Company Number: None

PATIENT
  Age: 64 Year
  Sex: Male

DRUGS (3)
  1. CARBOPLATIN [Interacting]
     Active Substance: CARBOPLATIN
     Indication: Lung neoplasm malignant
     Route: 042
     Dates: start: 20210211
  2. PACLITAXEL [Interacting]
     Active Substance: PACLITAXEL
     Indication: Lung neoplasm malignant
     Dosage: 60 MG/M2 D1/D8/D15
     Route: 042
     Dates: start: 20210211
  3. GEMFIBROZIL [Interacting]
     Active Substance: GEMFIBROZIL
     Indication: Hypercholesterolaemia
     Route: 048
     Dates: end: 20210224

REACTIONS (2)
  - Drug interaction [Unknown]
  - Febrile neutropenia [Recovered/Resolved]

NARRATIVE: CASE EVENT DATE: 20210211
